FAERS Safety Report 20542140 (Version 2)
Quarter: 2022Q1

REPORT INFORMATION
  Report Type: Spontaneous
  Country: US (occurrence: US)
  Receive Date: 20220302
  Receipt Date: 20220330
  Transmission Date: 20220423
  Serious: No
  Sender: FDA-Public Use
  Company Number: US-ORGANON-O2202USA000964

PATIENT
  Age: 23 Year
  Sex: Female
  Weight: 99.773 kg

DRUGS (1)
  1. NEXPLANON [Suspect]
     Active Substance: ETONOGESTREL
     Indication: Contraception
     Dosage: 68 MG ONCE
     Route: 059
     Dates: start: 20210517

REACTIONS (3)
  - Device breakage [Not Recovered/Not Resolved]
  - Implant site pruritus [Unknown]
  - Wrong technique in device usage process [Unknown]

NARRATIVE: CASE EVENT DATE: 20220203
